FAERS Safety Report 14511529 (Version 1)
Quarter: 2018Q1

REPORT INFORMATION
  Report Type: Spontaneous
  Country: US (occurrence: US)
  Receive Date: 20180209
  Receipt Date: 20180209
  Transmission Date: 20180509
  Serious: No
  Sender: FDA-Public Use
  Company Number: US-ENDO PHARMACEUTICALS INC-2017-001770

PATIENT
  Age: 37 Year
  Sex: Male
  Weight: 99.77 kg

DRUGS (2)
  1. FORTESTA [Suspect]
     Active Substance: TESTOSTERONE
     Indication: BLOOD TESTOSTERONE DECREASED
     Dosage: APPLIED TO INNER THIGHS DOSE VARIES DEPENDING ON BLOODWORK, BETWEEN 6 TO 8 ACTUATIONS A DAY
     Route: 061
     Dates: start: 2011
  2. DOXYCYCLINE. [Concomitant]
     Active Substance: DOXYCYCLINE
     Indication: ACNE

REACTIONS (5)
  - Upper-airway cough syndrome [Unknown]
  - Overdose [Unknown]
  - Respiratory tract infection [Not Recovered/Not Resolved]
  - Application site erythema [Unknown]
  - Application site irritation [Unknown]

NARRATIVE: CASE EVENT DATE: 20170403
